FAERS Safety Report 8845665 (Version 1)
Quarter: 2012Q4

REPORT INFORMATION
  Report Type: 
  Country: US (occurrence: US)
  Receive Date: 20121017
  Receipt Date: 20121017
  Transmission Date: 20130627
  Serious: Yes (Other)
  Sender: FDA-Public Use
  Company Number: US-ROCHE-1139225

PATIENT
  Sex: Female
  Weight: 18.1 kg

DRUGS (1)
  1. NUTROPIN AQ [Suspect]
     Indication: GROWTH HORMONE DEFICIENCY
     Route: 058
     Dates: end: 19990316

REACTIONS (5)
  - Device failure [Unknown]
  - Tonsillitis [Unknown]
  - Abdominal pain [Unknown]
  - Decreased appetite [Unknown]
  - Lymphadenopathy [Unknown]
